FAERS Safety Report 9892043 (Version 1)
Quarter: 2014Q1

REPORT INFORMATION
  Report Type: Spontaneous
  Country: US (occurrence: US)
  Receive Date: 20140212
  Receipt Date: 20140212
  Transmission Date: 20141002
  Serious: Yes (Death)
  Sender: FDA-Public Use
  Company Number: US-GLAXOSMITHKLINE-A1055232A

PATIENT
  Age: 66 Year
  Sex: Female

DRUGS (1)
  1. FLOLAN [Suspect]
     Indication: PULMONARY ARTERIAL HYPERTENSION
     Dosage: 13.4NGKM CONTINUOUS
     Route: 042
     Dates: start: 20131209

REACTIONS (2)
  - Death [Fatal]
  - Catheter site pain [Unknown]
